FAERS Safety Report 23841730 (Version 1)
Quarter: 2024Q2

REPORT INFORMATION
  Report Type: Spontaneous
  Country: US (occurrence: US)
  Receive Date: 20240510
  Receipt Date: 20240510
  Transmission Date: 20240715
  Serious: No
  Sender: FDA-Public Use
  Company Number: US-COLLEGIUM PHARMACEUTICAL, INC.-20230700607

PATIENT

DRUGS (5)
  1. XTAMPZA ER [Suspect]
     Active Substance: OXYCODONE
     Indication: Back pain
     Dosage: 18 MILLIGRAM, BID
     Route: 048
     Dates: start: 20230624, end: 20230713
  2. XTAMPZA ER [Suspect]
     Active Substance: OXYCODONE
     Indication: Myalgia
     Dosage: 27 MILLIGRAM, BID
     Route: 048
     Dates: start: 20230720, end: 20230723
  3. ALLOPURINOL [Concomitant]
     Active Substance: ALLOPURINOL
     Indication: Gout
     Dosage: UNK, UNKNOWN
     Route: 065
  4. SOTALOL [Concomitant]
     Active Substance: SOTALOL
     Indication: Blood pressure abnormal
     Dosage: UNK, UNKNOWN
     Route: 065
  5. ELIQUIS [Concomitant]
     Active Substance: APIXABAN
     Indication: Cardiac disorder
     Dosage: UNK, UNKNOWN
     Route: 065

REACTIONS (9)
  - Drug ineffective [Unknown]
  - Hypoaesthesia oral [Recovering/Resolving]
  - Anosmia [Recovering/Resolving]
  - Ageusia [Recovering/Resolving]
  - Hypoaesthesia [Recovering/Resolving]
  - Peripheral swelling [Recovering/Resolving]
  - Abdominal discomfort [Recovering/Resolving]
  - Therapeutic response decreased [Unknown]
  - Inappropriate schedule of product discontinuation [Unknown]

NARRATIVE: CASE EVENT DATE: 20230624
